FAERS Safety Report 20724785 (Version 1)
Quarter: 2022Q2

REPORT INFORMATION
  Report Type: Spontaneous
  Country: US (occurrence: None)
  Receive Date: 20220418
  Receipt Date: 20220418
  Transmission Date: 20220721
  Serious: No
  Sender: FDA-Public Use
  Company Number: None

PATIENT
  Age: 79 Year
  Sex: Female
  Weight: 59.51 kg

DRUGS (16)
  1. CAPECITABINE [Suspect]
     Active Substance: CAPECITABINE
     Indication: Lung carcinoma cell type unspecified stage 0
     Dosage: FREQUENCY : TWICE A DAY;?
     Route: 048
  2. TEMOZOLOMIDE [Suspect]
     Active Substance: TEMOZOLOMIDE
  3. TEMOZOLOMIDE [Suspect]
     Active Substance: TEMOZOLOMIDE
  4. AMLODIPINE [Concomitant]
     Active Substance: AMLODIPINE BESYLATE
  5. ATENOLOL [Concomitant]
     Active Substance: ATENOLOL
  6. BUDESONIDE ER [Concomitant]
  7. DICYCLOMINE [Concomitant]
  8. LOMOTIL [Concomitant]
  9. LOPERAMIDE [Concomitant]
  10. METFORMIN [Concomitant]
  11. ONDANSETRON [Concomitant]
  12. PRAVASTATIN [Concomitant]
  13. SOMATULINE [Concomitant]
  14. TIMOLOL [Concomitant]
  15. VITAMIN D [Concomitant]
     Active Substance: VITAMIN D NOS
  16. ZOFRAN [Concomitant]

REACTIONS (1)
  - Metastatic neoplasm [None]

NARRATIVE: CASE EVENT DATE: 20220415
